FAERS Safety Report 25584007 (Version 3)
Quarter: 2025Q3

REPORT INFORMATION
  Report Type: Spontaneous
  Country: US (occurrence: None)
  Receive Date: 20250721
  Receipt Date: 20250730
  Transmission Date: 20251021
  Serious: Yes (Other)
  Sender: ENCUBE ETHICALS
  Company Number: US-Encube-002064

PATIENT
  Sex: Female

DRUGS (1)
  1. DICLOFENAC SODIUM [Suspect]
     Active Substance: DICLOFENAC SODIUM
     Indication: Product used for unknown indication

REACTIONS (5)
  - Loss of consciousness [Unknown]
  - Mania [Unknown]
  - Visual impairment [Unknown]
  - Myocardial infarction [Unknown]
  - Brain injury [Unknown]

NARRATIVE: CASE EVENT DATE: 20250701
